FAERS Safety Report 4447908-9 (Version None)
Quarter: 2004Q3

REPORT INFORMATION
  Report Type: 
  Country: None (occurrence: None)
  Receive Date: 20040729
  Receipt Date: 20031218
  Transmission Date: 20050211
  Serious: Yes (Life-Threatening)
  Sender: FDA-Public Use
  Company Number: RED/03/06/SCH

PATIENT
  Age: 1 Year
  Sex: Male

DRUGS (5)
  1. IMMUNE GLOBULIN (HUMAN) [Suspect]
     Indication: LIVER TRANSPLANT
     Dosage: 1 G, ONCE, I.V.
     Route: 042
     Dates: start: 20031203, end: 20031203
  2. PREDNISOLONE-P (PREDNISOLONE) [Concomitant]
  3. CELLCEPT [Concomitant]
  4. ZOVIRAX [Concomitant]
  5. URSOFALK (URSOSEOXYCHOLIC ACID) [Concomitant]

REACTIONS (3)
  - ANAPHYLACTIC SHOCK [None]
  - HYPOTENSION [None]
  - PYREXIA [None]
